FAERS Safety Report 11431405 (Version 4)
Quarter: 2015Q4

REPORT INFORMATION
  Report Type: Report from Study
  Country: CO (occurrence: CO)
  Receive Date: 20150828
  Receipt Date: 20151012
  Transmission Date: 20160304
  Serious: Yes (Death, Hospitalization, Other)
  Sender: FDA-Public Use
  Company Number: PHHY2015CO103670

PATIENT
  Age: 28 Year
  Sex: Male
  Weight: 60 kg

DRUGS (4)
  1. SANDOSTATIN LAR DEPOT [Suspect]
     Active Substance: OCTREOTIDE ACETATE
     Indication: METASTASES TO LIVER
  2. SANDOSTATIN LAR DEPOT [Suspect]
     Active Substance: OCTREOTIDE ACETATE
     Indication: SMALL INTESTINE CARCINOMA METASTATIC
     Dosage: 30 MG, QMO (1 IN EACH GLUTEUS)
     Route: 030
  3. EVEROLIMUS [Concomitant]
     Active Substance: EVEROLIMUS
     Indication: METASTASES TO LIVER
  4. EVEROLIMUS [Concomitant]
     Active Substance: EVEROLIMUS
     Indication: SMALL INTESTINE CARCINOMA METASTATIC
     Dosage: 10 MG, QD
     Route: 065

REACTIONS (11)
  - Cardiac failure [Unknown]
  - Pleural effusion [Unknown]
  - Metastases to heart [Fatal]
  - Depressed mood [Unknown]
  - Pericardial effusion [Unknown]
  - Off label use [Unknown]
  - Fluid retention [Unknown]
  - Renal failure [Unknown]
  - Dyspnoea [Unknown]
  - Metastases to lung [Fatal]
  - Generalised oedema [Unknown]

NARRATIVE: CASE EVENT DATE: 20150801
